FAERS Safety Report 16063965 (Version 1)
Quarter: 2019Q1

REPORT INFORMATION
  Report Type: Spontaneous
  Country: FR (occurrence: FR)
  Receive Date: 20190312
  Receipt Date: 20190312
  Transmission Date: 20190418
  Serious: Yes (Hospitalization, Other)
  Sender: FDA-Public Use
  Company Number: FR-PFIZER INC-2019104137

PATIENT
  Age: 24861 Day
  Sex: Male

DRUGS (13)
  1. PERINDOPRIL [Suspect]
     Active Substance: PERINDOPRIL
     Indication: HYPERTENSION
     Route: 048
     Dates: end: 20181218
  2. ALLOPURINOL. [Suspect]
     Active Substance: ALLOPURINOL
     Indication: GOUT
     Dosage: 100 MG, 1X/DAY
     Route: 048
  3. TINZAPARIN [Concomitant]
     Active Substance: TINZAPARIN
  4. KAYEXALATE [Concomitant]
     Active Substance: SODIUM POLYSTYRENE SULFONATE
  5. IMFINZI [Suspect]
     Active Substance: DURVALUMAB
     Indication: SQUAMOUS CELL CARCINOMA OF LUNG
     Dosage: 750 MG, UNK
     Route: 042
     Dates: start: 20181217
  6. PANTOPRAZOLE [Concomitant]
     Active Substance: PANTOPRAZOLE
     Indication: UPPER GASTROINTESTINAL HAEMORRHAGE
  7. MIANSERIN [Suspect]
     Active Substance: MIANSERIN
     Dosage: 15 MG, 1X/DAY
     Route: 048
     Dates: end: 20181218
  8. DOCETAXEL. [Suspect]
     Active Substance: DOCETAXEL
     Dosage: 160 MG/8 ML WEEKLY
  9. CACIT [CALCIUM CARBONATE;CITRIC ACID] [Suspect]
     Active Substance: CALCIUM CARBONATE\CITRIC ACID MONOHYDRATE
     Dosage: 1000 MG, 1X/DAY
     Route: 048
     Dates: end: 20181218
  10. ONDANSETRON [Suspect]
     Active Substance: ONDANSETRON
     Indication: PROPHYLAXIS
     Dosage: 8 MG, WEEKLY
     Route: 048
     Dates: start: 20181022, end: 20181223
  11. LYRICA [Concomitant]
     Active Substance: PREGABALIN
  12. PARACETAMOL [Concomitant]
     Active Substance: ACETAMINOPHEN
  13. SPECIAFOLDINE [Concomitant]
     Active Substance: FOLIC ACID

REACTIONS (6)
  - Radiation pneumonitis [Unknown]
  - Respiratory failure [Recovered/Resolved]
  - Interstitial lung disease [Recovering/Resolving]
  - Pneumonitis [Unknown]
  - Cough [Recovering/Resolving]
  - Heart rate increased [Unknown]

NARRATIVE: CASE EVENT DATE: 20181218
